FAERS Safety Report 15146372 (Version 1)
Quarter: 2018Q3

REPORT INFORMATION
  Report Type: Spontaneous
  Country: GB (occurrence: GB)
  Receive Date: 20180715
  Receipt Date: 20180715
  Transmission Date: 20181010
  Serious: Yes (Other)
  Sender: FDA-Public Use
  Company Number: GB-TORRENT-00016870

PATIENT
  Age: 45 Year
  Sex: Male

DRUGS (3)
  1. LEVOTHYROXINE. [Concomitant]
     Active Substance: LEVOTHYROXINE
     Indication: HYPOTHYROIDISM
     Dosage: UNKNOWN
  2. ZUCLOPENTHIXOL DECANOATE [Suspect]
     Active Substance: ZUCLOPENTHIXOL DECANOATE
     Indication: SCHIZOPHRENIA
     Dosage: DEPOT; TITRATED TO A DOSE OF 600MG ONCE WEEKLY
  3. OLANZAPINE. [Suspect]
     Active Substance: OLANZAPINE
     Indication: SCHIZOPHRENIA
     Dosage: UNKNOWN

REACTIONS (7)
  - Electrocardiogram QT prolonged [Unknown]
  - Tachycardia [Unknown]
  - Arrhythmia [Unknown]
  - Gynaecomastia [Recovered/Resolved]
  - Neuropathy peripheral [Recovered/Resolved]
  - Type 2 diabetes mellitus [Recovering/Resolving]
  - Hypertension [Unknown]
